FAERS Safety Report 5909157-4 (Version None)
Quarter: 2008Q4

REPORT INFORMATION
  Report Type: 
  Country: None (occurrence: None)
  Receive Date: 20081001
  Receipt Date: 20080912
  Transmission Date: 20090506
  Serious: Yes (Hospitalization)
  Sender: FDA-Public Use
  Company Number: 20275

PATIENT
  Age: 58 Year
  Sex: Female
  Weight: 58 kg

DRUGS (9)
  1. EPIRUBICIN [Suspect]
     Indication: BREAST CANCER
     Dosage: 75 MG PER_CYCLE IV
     Route: 042
  2. EPIRUBICIN [Suspect]
     Indication: METASTASES TO LIVER
     Dosage: 75 MG PER_CYCLE IV
     Route: 042
  3. EPIRUBICIN [Suspect]
     Indication: METASTASES TO LUNG
     Dosage: 75 MG PER_CYCLE IV
     Route: 042
  4. ALBUMIN /01102501/. MFR: NOT SPECIFIED [Concomitant]
  5. AMOXICILLIN + CLAVULANATE POTASSIUM [Concomitant]
  6. CYCLOPHOSPHAMIDE [Concomitant]
  7. DEXAMETHASONE [Concomitant]
  8. LANSOPRAZOLE [Concomitant]
  9. MELOXICAM [Concomitant]

REACTIONS (2)
  - ASCITES [None]
  - NEUTROPENIA [None]
